FAERS Safety Report 7331290-3 (Version None)
Quarter: 2011Q1

REPORT INFORMATION
  Report Type: 
  Country: None (occurrence: None)
  Receive Date: 20110304
  Receipt Date: 20110223
  Transmission Date: 20110831
  Serious: Yes (Life-Threatening, Hospitalization, Other)
  Sender: FDA-Public Use
  Company Number: JP-JNJFOC-20091005087

PATIENT
  Sex: Female
  Weight: 60 kg

DRUGS (13)
  1. ESTRADIOL [Concomitant]
     Route: 048
  2. ANDERM [Concomitant]
     Indication: PALMAR-PLANTAR ERYTHRODYSAESTHESIA SYNDROME
     Route: 061
  3. GENTACIN [Concomitant]
     Indication: PALMAR-PLANTAR ERYTHRODYSAESTHESIA SYNDROME
     Route: 061
  4. HICEE [Concomitant]
     Route: 048
  5. VITANEURIN [Concomitant]
     Route: 048
  6. DOXORUBICIN HCL [Suspect]
     Indication: OVARIAN CANCER RECURRENT
     Dosage: CYCLE 3
     Route: 042
  7. KENALOG [Concomitant]
     Route: 049
  8. MYSER [Concomitant]
     Indication: PALMAR-PLANTAR ERYTHRODYSAESTHESIA SYNDROME
     Route: 061
  9. DOXORUBICIN HCL [Suspect]
     Dosage: CYCLE 1
     Route: 042
  10. DOXORUBICIN HCL [Suspect]
     Dosage: CYCLE 2
     Route: 042
  11. AMOBAN [Concomitant]
     Route: 048
  12. AZUNOL [Concomitant]
     Indication: PALMAR-PLANTAR ERYTHRODYSAESTHESIA SYNDROME
     Route: 061
  13. HACHIAZULE [Concomitant]
     Indication: PROPHYLAXIS
     Route: 049

REACTIONS (1)
  - INTERSTITIAL LUNG DISEASE [None]
